FAERS Safety Report 16889938 (Version 1)
Quarter: 2019Q4

REPORT INFORMATION
  Report Type: Spontaneous
  Country: US (occurrence: US)
  Receive Date: 20191007
  Receipt Date: 20191007
  Transmission Date: 20200122
  Serious: Yes (Other)
  Sender: FDA-Public Use
  Company Number: US-ROCHE-2422447

PATIENT
  Age: 72 Year
  Sex: Female

DRUGS (1)
  1. TECENTRIQ [Suspect]
     Active Substance: ATEZOLIZUMAB
     Indication: TRIPLE NEGATIVE BREAST CANCER
     Route: 065

REACTIONS (8)
  - Alopecia [Unknown]
  - Weight increased [Unknown]
  - Fatigue [Unknown]
  - Depression [Unknown]
  - Gait disturbance [Unknown]
  - Nausea [Unknown]
  - Intentional product use issue [Unknown]
  - Off label use [Unknown]
